FAERS Safety Report 25949685 (Version 1)
Quarter: 2025Q4

REPORT INFORMATION
  Report Type: Spontaneous
  Country: EU (occurrence: EU)
  Receive Date: 20251022
  Receipt Date: 20251022
  Transmission Date: 20260117
  Serious: Yes (Other)
  Sender: MYLAN
  Company Number: EU-COOPER CONSUMER HEALTH B.V-CC2025SE000038

PATIENT
  Age: 77 Year
  Sex: Male

DRUGS (4)
  1. ESOMEPRAZOLE [Suspect]
     Active Substance: ESOMEPRAZOLE
     Indication: Product used for unknown indication
     Dosage: UNK
  2. APROBARBITAL\ASPIRIN\CAFFEINE\CODEINE PHOSPHATE [Suspect]
     Active Substance: APROBARBITAL\ASPIRIN\CAFFEINE\CODEINE PHOSPHATE
     Indication: Headache
     Dosage: UNK UNK, PRN (1 TO 2 TABLETS A DAY, PRN (WHEN NEEDED) IN THE MORNING FOR 30 YEARS  )
  3. NEXIUM [Suspect]
     Active Substance: ESOMEPRAZOLE MAGNESIUM
     Indication: Product used for unknown indication
     Dosage: UNK
  4. MAGNESIUM [Concomitant]
     Active Substance: MAGNESIUM
     Indication: Product used for unknown indication
     Dosage: UNK (UNK (MAYBE 2 TIMES A WEEK))

REACTIONS (7)
  - Type 1 diabetes mellitus [Unknown]
  - Rash [Unknown]
  - Pain [Unknown]
  - Blood disorder [Unknown]
  - Anxiety [Unknown]
  - Product physical issue [Unknown]
  - Product use issue [Unknown]
